FAERS Safety Report 5498513-7 (Version None)
Quarter: 2007Q4

REPORT INFORMATION
  Report Type: 
  Country: None (occurrence: None)
  Receive Date: 20071025
  Receipt Date: 20071025
  Transmission Date: 20080405
  Serious: No
  Sender: FDA-Public Use
  Company Number: None

PATIENT
  Sex: Female
  Weight: 73.4827 kg

DRUGS (1)
  1. ARAVA [Suspect]
     Indication: POLYARTHRITIS
     Dosage: 20 MG QD PO
     Route: 048
     Dates: start: 20070316, end: 20070914

REACTIONS (1)
  - HYPERTHYROIDISM [None]
